FAERS Safety Report 5945092-3 (Version None)
Quarter: 2008Q4

REPORT INFORMATION
  Report Type: 
  Country: None (occurrence: None)
  Receive Date: 20081107
  Receipt Date: 20081027
  Transmission Date: 20090506
  Serious: Yes (Hospitalization, Other)
  Sender: FDA-Public Use
  Company Number: BE-GENENTECH-270912

PATIENT
  Sex: Female

DRUGS (3)
  1. HERCEPTIN [Suspect]
     Indication: BREAST CANCER
     Dosage: UNK
     Route: 042
     Dates: start: 20080901, end: 20081001
  2. CORTICOIDS [Concomitant]
     Indication: ASTHMA
     Dosage: UNK
  3. AEROSOL UNSPECIFIED [Concomitant]
     Indication: ASTHMA
     Dosage: UNK

REACTIONS (2)
  - ASTHMA [None]
  - ASTHMATIC CRISIS [None]
